FAERS Safety Report 9217594 (Version 3)
Quarter: 2013Q4

REPORT INFORMATION
  Report Type: Spontaneous
  Country: US (occurrence: US)
  Receive Date: 20130408
  Receipt Date: 20131230
  Transmission Date: 20140711
  Serious: Yes (Other)
  Sender: FDA-Public Use
  Company Number: US-UCBSA-082187

PATIENT
  Age: 55 Year
  Sex: Female

DRUGS (2)
  1. CIMZIA [Suspect]
     Indication: CROHN^S DISEASE
     Route: 058
     Dates: start: 20090713
  2. CIMZIA [Suspect]
     Indication: COLITIS ULCERATIVE
     Route: 058
     Dates: start: 20090713

REACTIONS (1)
  - Cellulitis [Recovered/Resolved]
